FAERS Safety Report 15253327 (Version 4)
Quarter: 2018Q3

REPORT INFORMATION
  Report Type: Spontaneous
  Country: BR (occurrence: BR)
  Receive Date: 20180807
  Receipt Date: 20180903
  Transmission Date: 20181010
  Serious: Yes (Death, Hospitalization, Other)
  Sender: FDA-Public Use
  Company Number: PHHY2018BR066000

PATIENT
  Age: 70 Year
  Sex: Male
  Weight: 96 kg

DRUGS (7)
  1. PENICILLIN [Concomitant]
     Active Substance: PENICILLIN
     Indication: PRODUCT USED FOR UNKNOWN INDICATION
     Dosage: UNK UNK, ONCE/SINGLE
     Route: 065
  2. ADVIL [Suspect]
     Active Substance: IBUPROFEN
     Indication: ARTHRITIS
  3. DAFLON [Concomitant]
     Indication: PRODUCT USED FOR UNKNOWN INDICATION
     Dosage: UNK
     Route: 065
  4. COMBODART [Concomitant]
     Active Substance: DUTASTERIDE\TAMSULOSIN
     Indication: PROSTATE TENDERNESS
     Dosage: UNK
     Route: 065
  5. VOLTAREN [Suspect]
     Active Substance: DICLOFENAC SODIUM
     Indication: SPINAL PAIN
     Dosage: UNK
     Route: 042
  6. ADVIL [Suspect]
     Active Substance: IBUPROFEN
     Indication: ARTHRALGIA
     Dosage: 1 DF, PRN
     Route: 065
  7. GLIBENCLAMIDE [Concomitant]
     Active Substance: GLYBURIDE
     Indication: DIABETES MELLITUS
     Dosage: UNK
     Route: 065

REACTIONS (12)
  - Nephrolithiasis [Unknown]
  - Anaphylactic shock [Unknown]
  - Pain [Not Recovered/Not Resolved]
  - Vasodilatation [Not Recovered/Not Resolved]
  - Hepatic pain [Unknown]
  - Renal pain [Recovered/Resolved]
  - Multiple organ dysfunction syndrome [Fatal]
  - Diabetes mellitus [Unknown]
  - Myocardial infarction [Unknown]
  - Malaise [Unknown]
  - Wound [Unknown]
  - Renal disorder [Unknown]
